FAERS Safety Report 5024480-6 (Version None)
Quarter: 2006Q2

REPORT INFORMATION
  Report Type: 
  Country: None (occurrence: None)
  Receive Date: 20060609
  Receipt Date: 20060609
  Transmission Date: 20061013
  Serious: Yes (Hospitalization, Other)
  Sender: FDA-Public Use
  Company Number: None

PATIENT
  Sex: Female
  Weight: 55.3 kg

DRUGS (4)
  1. LEUCOVORIN CALCIUM [Suspect]
     Indication: ACUTE LYMPHOCYTIC LEUKAEMIA
     Dosage: 75 MG
     Dates: start: 20060425
  2. MERCAPTOPURINE [Suspect]
     Dosage: 2520 MG
     Dates: start: 20060508
  3. METHOTREXATE [Suspect]
     Dosage: 3000 MG
     Dates: start: 20060425
  4. VINCRISTINE SULFATE [Suspect]
     Dosage: 4 MG
     Dates: start: 20060425

REACTIONS (3)
  - HERPES ZOSTER [None]
  - NEUTROPENIA [None]
  - PYREXIA [None]
